FAERS Safety Report 21493692 (Version 1)
Quarter: 2022Q4

REPORT INFORMATION
  Report Type: Spontaneous
  Country: PR (occurrence: None)
  Receive Date: 20221021
  Receipt Date: 20221021
  Transmission Date: 20230113
  Serious: Yes (Life-Threatening, Hospitalization, Disabling)
  Sender: FDA-Public Use
  Company Number: None

PATIENT
  Age: 76 Year
  Sex: Female
  Weight: 58.5 kg

DRUGS (5)
  1. LEVOFLOXACIN [Suspect]
     Active Substance: LEVOFLOXACIN
     Indication: Infection prophylaxis
     Dosage: FREQUENCY : DAILY;?
     Route: 048
     Dates: start: 20221017, end: 20221018
  2. LEVOFLOXACIN [Suspect]
     Active Substance: LEVOFLOXACIN
     Indication: Post procedural infection
  3. LOSARTAN [Concomitant]
     Active Substance: LOSARTAN
  4. LIPITOR [Concomitant]
     Active Substance: ATORVASTATIN CALCIUM
  5. VITAMIN D [Concomitant]
     Active Substance: VITAMIN D NOS

REACTIONS (6)
  - Disorientation [None]
  - Incoherent [None]
  - Abnormal behaviour [None]
  - Dysphagia [None]
  - Oligodipsia [None]
  - Psychiatric symptom [None]

NARRATIVE: CASE EVENT DATE: 20221018
